FAERS Safety Report 24256147 (Version 1)
Quarter: 2024Q3

REPORT INFORMATION
  Report Type: Spontaneous
  Country: CA (occurrence: CA)
  Receive Date: 20240827
  Receipt Date: 20240827
  Transmission Date: 20241017
  Serious: Yes (Life-Threatening, Hospitalization, Disabling, Other)
  Sender: BRISTOL MYERS SQUIBB
  Company Number: CA-BRISTOL-MYERS SQUIBB COMPANY-2024-131460

PATIENT
  Age: 44 Year
  Sex: Female
  Weight: 70 kg

DRUGS (252)
  1. ORENCIA [Suspect]
     Active Substance: ABATACEPT
     Indication: Rheumatoid arthritis
     Route: 058
  2. ORENCIA [Suspect]
     Active Substance: ABATACEPT
     Indication: Psoriatic arthropathy
     Route: 058
  3. ORENCIA [Suspect]
     Active Substance: ABATACEPT
     Route: 058
  4. ORENCIA [Suspect]
     Active Substance: ABATACEPT
     Route: 058
  5. ORENCIA [Suspect]
     Active Substance: ABATACEPT
     Route: 058
  6. ORENCIA [Suspect]
     Active Substance: ABATACEPT
     Route: 058
  7. ORENCIA [Suspect]
     Active Substance: ABATACEPT
  8. ORENCIA [Suspect]
     Active Substance: ABATACEPT
     Indication: Psoriatic arthropathy
     Route: 042
  9. ORENCIA [Suspect]
     Active Substance: ABATACEPT
     Indication: Rheumatoid arthritis
  10. ORENCIA [Suspect]
     Active Substance: ABATACEPT
     Indication: Rheumatoid arthritis
     Route: 048
  11. ORENCIA [Suspect]
     Active Substance: ABATACEPT
     Indication: Psoriatic arthropathy
  12. ACETAMINOPHEN [Concomitant]
     Active Substance: ACETAMINOPHEN
     Indication: Rheumatoid arthritis
  13. ACETAMINOPHEN AND CODEINE [Concomitant]
     Active Substance: ACETAMINOPHEN\CODEINE PHOSPHATE
     Indication: Product used for unknown indication
  14. ACETAMINOPHEN\OXYCODONE HYDROCHLORIDE [Concomitant]
     Active Substance: ACETAMINOPHEN\OXYCODONE HYDROCHLORIDE
     Indication: Product used for unknown indication
  15. ACTEMRA [Concomitant]
     Active Substance: TOCILIZUMAB
     Indication: Rheumatoid arthritis
  16. ACTEMRA [Concomitant]
     Active Substance: TOCILIZUMAB
  17. ACTEMRA [Concomitant]
     Active Substance: TOCILIZUMAB
     Route: 042
  18. ACTEMRA [Concomitant]
     Active Substance: TOCILIZUMAB
     Route: 042
  19. ACTEMRA [Concomitant]
     Active Substance: TOCILIZUMAB
     Route: 042
  20. ACTEMRA [Concomitant]
     Active Substance: TOCILIZUMAB
     Route: 016
  21. ACTEMRA [Concomitant]
     Active Substance: TOCILIZUMAB
     Route: 016
  22. ACTEMRA [Concomitant]
     Active Substance: TOCILIZUMAB
     Route: 061
  23. ACTEMRA [Concomitant]
     Active Substance: TOCILIZUMAB
     Route: 058
  24. ACTEMRA [Concomitant]
     Active Substance: TOCILIZUMAB
     Route: 042
  25. ACTEMRA [Concomitant]
     Active Substance: TOCILIZUMAB
     Route: 048
  26. ACTEMRA [Concomitant]
     Active Substance: TOCILIZUMAB
  27. ACTEMRA [Concomitant]
     Active Substance: TOCILIZUMAB
     Route: 048
  28. ACTEMRA [Concomitant]
     Active Substance: TOCILIZUMAB
     Route: 058
  29. ACTEMRA [Concomitant]
     Active Substance: TOCILIZUMAB
     Route: 042
  30. ACTEMRA [Concomitant]
     Active Substance: TOCILIZUMAB
     Route: 016
  31. ACTEMRA [Concomitant]
     Active Substance: TOCILIZUMAB
     Route: 042
  32. ALENDRONATE SODIUM [Concomitant]
     Active Substance: ALENDRONATE SODIUM
     Indication: Rheumatoid arthritis
  33. PANTOPRAZOLE SODIUM ANHYDROUS [Concomitant]
     Active Substance: PANTOPRAZOLE SODIUM ANHYDROUS
  34. PREDNISONE [Concomitant]
     Active Substance: PREDNISONE
     Indication: Systemic lupus erythematosus
     Route: 048
  35. PREDNISONE [Concomitant]
     Active Substance: PREDNISONE
     Indication: Synovitis
  36. PREDNISONE [Concomitant]
     Active Substance: PREDNISONE
     Indication: Rheumatoid arthritis
  37. PREDNISONE [Concomitant]
     Active Substance: PREDNISONE
     Indication: Psoriatic arthropathy
  38. PREDNISONE [Concomitant]
     Active Substance: PREDNISONE
     Indication: Pemphigus
     Route: 048
  39. PREDNISONE [Concomitant]
     Active Substance: PREDNISONE
     Indication: Inflammation
     Route: 048
  40. PREDNISONE [Concomitant]
     Active Substance: PREDNISONE
     Indication: Bursitis
  41. ARAVA [Concomitant]
     Active Substance: LEFLUNOMIDE
     Indication: Rheumatoid arthritis
  42. ARAVA [Concomitant]
     Active Substance: LEFLUNOMIDE
     Route: 005
  43. ARAVA [Concomitant]
     Active Substance: LEFLUNOMIDE
     Route: 019
  44. ARAVA [Concomitant]
     Active Substance: LEFLUNOMIDE
     Route: 048
  45. ARAVA [Concomitant]
     Active Substance: LEFLUNOMIDE
     Route: 048
  46. ARAVA [Concomitant]
     Active Substance: LEFLUNOMIDE
     Route: 019
  47. ACETAMINOPHEN [Concomitant]
     Active Substance: ACETAMINOPHEN
  48. ATIVAN [Concomitant]
     Active Substance: LORAZEPAM
  49. CAFFEINE [Concomitant]
     Active Substance: CAFFEINE
  50. CETIRIZINE HYDROCHLORIDE [Concomitant]
     Active Substance: CETIRIZINE HYDROCHLORIDE
     Indication: Rheumatoid arthritis
  51. CETIRIZINE HYDROCHLORIDE [Concomitant]
     Active Substance: CETIRIZINE HYDROCHLORIDE
  52. CETIRIZINE HYDROCHLORIDE [Concomitant]
     Active Substance: CETIRIZINE HYDROCHLORIDE
     Route: 048
  53. CETIRIZINE HYDROCHLORIDE [Concomitant]
     Active Substance: CETIRIZINE HYDROCHLORIDE
     Route: 005
  54. CETIRIZINE HYDROCHLORIDE [Concomitant]
     Active Substance: CETIRIZINE HYDROCHLORIDE
     Route: 016
  55. CETIRIZINE HYDROCHLORIDE [Concomitant]
     Active Substance: CETIRIZINE HYDROCHLORIDE
  56. CETIRIZINE HYDROCHLORIDE [Concomitant]
     Active Substance: CETIRIZINE HYDROCHLORIDE
  57. CETIRIZINE HYDROCHLORIDE [Concomitant]
     Active Substance: CETIRIZINE HYDROCHLORIDE
     Route: 048
  58. CHLORHEXIDINE [Concomitant]
     Active Substance: CHLORHEXIDINE
     Route: 048
  59. CHLORHEXIDINE [Concomitant]
     Active Substance: CHLORHEXIDINE
     Route: 048
  60. CHLORHEXIDINE [Concomitant]
     Active Substance: CHLORHEXIDINE
     Route: 061
  61. CIMZIA [Concomitant]
     Active Substance: CERTOLIZUMAB PEGOL
     Indication: Rheumatoid arthritis
  62. CIMZIA [Concomitant]
     Active Substance: CERTOLIZUMAB PEGOL
  63. CIMZIA [Concomitant]
     Active Substance: CERTOLIZUMAB PEGOL
     Route: 005
  64. CIMZIA [Concomitant]
     Active Substance: CERTOLIZUMAB PEGOL
     Route: 058
  65. CODEINE [Concomitant]
     Active Substance: CODEINE
  66. CORTISONE ACETATE [Concomitant]
     Active Substance: CORTISONE ACETATE
     Indication: Rheumatoid arthritis
  67. CORTISONE ACETATE [Concomitant]
     Active Substance: CORTISONE ACETATE
     Route: 061
  68. CORTISONE ACETATE [Concomitant]
     Active Substance: CORTISONE ACETATE
     Route: 061
  69. CORTISONE ACETATE [Concomitant]
     Active Substance: CORTISONE ACETATE
     Route: 048
  70. CORTISONE ACETATE [Concomitant]
     Active Substance: CORTISONE ACETATE
     Route: 061
  71. CORTISONE ACETATE [Concomitant]
     Active Substance: CORTISONE ACETATE
     Route: 061
  72. CORTISONE ACETATE [Concomitant]
     Active Substance: CORTISONE ACETATE
  73. CORTISONE ACETATE [Concomitant]
     Active Substance: CORTISONE ACETATE
     Route: 048
  74. CORTISONE ACETATE [Concomitant]
     Active Substance: CORTISONE ACETATE
     Route: 061
  75. DESOXIMETASONE [Concomitant]
     Active Substance: DESOXIMETASONE
     Indication: Rheumatoid arthritis
     Route: 003
  76. DESOXIMETASONE [Concomitant]
     Active Substance: DESOXIMETASONE
     Route: 003
  77. DESOXIMETASONE [Concomitant]
     Active Substance: DESOXIMETASONE
     Route: 061
  78. DESOXIMETASONE [Concomitant]
     Active Substance: DESOXIMETASONE
     Route: 048
  79. DESOXIMETASONE [Concomitant]
     Active Substance: DESOXIMETASONE
     Route: 016
  80. DICLOFENAC [Concomitant]
     Active Substance: DICLOFENAC
     Indication: Rheumatoid arthritis
  81. DICLOFENAC [Concomitant]
     Active Substance: DICLOFENAC
     Route: 058
  82. ENBREL [Concomitant]
     Active Substance: BENZYL ALCOHOL\ETANERCEPT
     Indication: Rheumatoid arthritis
     Route: 058
  83. ENBREL [Concomitant]
     Active Substance: BENZYL ALCOHOL\ETANERCEPT
     Indication: Psoriatic arthropathy
     Route: 058
  84. ENBREL [Concomitant]
     Active Substance: BENZYL ALCOHOL\ETANERCEPT
     Route: 058
  85. ENBREL [Concomitant]
     Active Substance: BENZYL ALCOHOL\ETANERCEPT
  86. ENBREL [Concomitant]
     Active Substance: BENZYL ALCOHOL\ETANERCEPT
     Route: 058
  87. ENBREL [Concomitant]
     Active Substance: BENZYL ALCOHOL\ETANERCEPT
     Route: 058
  88. ENBREL [Concomitant]
     Active Substance: BENZYL ALCOHOL\ETANERCEPT
  89. ERGOCALCIFEROL [Concomitant]
     Active Substance: ERGOCALCIFEROL
  90. ESTRADIOL [Concomitant]
     Active Substance: ESTRADIOL
  91. FOLIC ACID [Concomitant]
     Active Substance: FOLIC ACID
     Indication: Rheumatoid arthritis
     Route: 058
  92. FOLIC ACID [Concomitant]
     Active Substance: FOLIC ACID
  93. FOLIC ACID [Concomitant]
     Active Substance: FOLIC ACID
  94. FOLIC ACID [Concomitant]
     Active Substance: FOLIC ACID
  95. FOLIC ACID [Concomitant]
     Active Substance: FOLIC ACID
     Route: 058
  96. FOLIC ACID [Concomitant]
     Active Substance: FOLIC ACID
  97. FOLIC ACID [Concomitant]
     Active Substance: FOLIC ACID
  98. FOLIC ACID [Concomitant]
     Active Substance: FOLIC ACID
     Route: 016
  99. FOLIC ACID [Concomitant]
     Active Substance: FOLIC ACID
     Route: 058
  100. FOLIC ACID [Concomitant]
     Active Substance: FOLIC ACID
     Route: 048
  101. FOSAMAX [Concomitant]
     Active Substance: ALENDRONATE SODIUM
     Indication: Rheumatoid arthritis
     Route: 005
  102. FOSAMAX [Concomitant]
     Active Substance: ALENDRONATE SODIUM
     Route: 048
  103. FOSAMAX [Concomitant]
     Active Substance: ALENDRONATE SODIUM
     Route: 016
  104. FOSAMAX [Concomitant]
     Active Substance: ALENDRONATE SODIUM
     Route: 048
  105. FOSAMAX [Concomitant]
     Active Substance: ALENDRONATE SODIUM
     Route: 005
  106. FOSAMAX [Concomitant]
     Active Substance: ALENDRONATE SODIUM
     Route: 058
  107. FOSAMAX [Concomitant]
     Active Substance: ALENDRONATE SODIUM
     Route: 048
  108. FOSAMAX [Concomitant]
     Active Substance: ALENDRONATE SODIUM
     Route: 048
  109. FOSAMAX [Concomitant]
     Active Substance: ALENDRONATE SODIUM
     Route: 048
  110. FOSAMAX [Concomitant]
     Active Substance: ALENDRONATE SODIUM
     Route: 048
  111. FOSAMAX [Concomitant]
     Active Substance: ALENDRONATE SODIUM
  112. GLUCOSAMINE [Concomitant]
     Active Substance: GLUCOSAMINE
  113. HUMIRA [Concomitant]
     Active Substance: ADALIMUMAB
     Indication: Rheumatoid arthritis
  114. HUMIRA [Concomitant]
     Active Substance: ADALIMUMAB
     Indication: Psoriatic arthropathy
     Route: 058
  115. HUMIRA [Concomitant]
     Active Substance: ADALIMUMAB
     Route: 058
  116. HUMIRA [Concomitant]
     Active Substance: ADALIMUMAB
     Route: 058
  117. HUMIRA [Concomitant]
     Active Substance: ADALIMUMAB
     Route: 058
  118. HUMIRA [Concomitant]
     Active Substance: ADALIMUMAB
     Route: 058
  119. HUMIRA [Concomitant]
     Active Substance: ADALIMUMAB
     Route: 058
  120. HUMIRA [Concomitant]
     Active Substance: ADALIMUMAB
     Route: 058
  121. HYDROCORTISONE [Concomitant]
     Active Substance: HYDROCORTISONE\HYDROCORTISONE ACETATE
     Indication: Rheumatoid arthritis
     Route: 003
  122. HYDROCORTISONE [Concomitant]
     Active Substance: HYDROCORTISONE\HYDROCORTISONE ACETATE
     Route: 048
  123. HYDROCORTISONE [Concomitant]
     Active Substance: HYDROCORTISONE\HYDROCORTISONE ACETATE
     Route: 058
  124. HYDROCORTISONE [Concomitant]
     Active Substance: HYDROCORTISONE\HYDROCORTISONE ACETATE
     Route: 061
  125. HYDROCORTISONE [Concomitant]
     Active Substance: HYDROCORTISONE\HYDROCORTISONE ACETATE
     Route: 061
  126. HYDROXYCHLOROQUINE [Concomitant]
     Active Substance: HYDROXYCHLOROQUINE
     Indication: Systemic lupus erythematosus
  127. HYDROXYCHLOROQUINE [Concomitant]
     Active Substance: HYDROXYCHLOROQUINE
     Indication: Rheumatoid arthritis
  128. HYDROXYCHLOROQUINE [Concomitant]
     Active Substance: HYDROXYCHLOROQUINE
  129. HYDROXYCHLOROQUINE [Concomitant]
     Active Substance: HYDROXYCHLOROQUINE
  130. HYDROXYCHLOROQUINE [Concomitant]
     Active Substance: HYDROXYCHLOROQUINE
  131. HYDROXYCHLOROQUINE [Concomitant]
     Active Substance: HYDROXYCHLOROQUINE
     Route: 066
  132. HYDROXYCHLOROQUINE [Concomitant]
     Active Substance: HYDROXYCHLOROQUINE
  133. HYDROXYCHLOROQUINE [Concomitant]
     Active Substance: HYDROXYCHLOROQUINE
     Route: 048
  134. HYDROXYCHLOROQUINE [Concomitant]
     Active Substance: HYDROXYCHLOROQUINE
     Route: 048
  135. HYDROXYCHLOROQUINE [Concomitant]
     Active Substance: HYDROXYCHLOROQUINE
     Route: 048
  136. HYDROXYCHLOROQUINE [Concomitant]
     Active Substance: HYDROXYCHLOROQUINE
     Route: 048
  137. HYDROXYCHLOROQUINE [Concomitant]
     Active Substance: HYDROXYCHLOROQUINE
     Route: 048
  138. HYDROXYCHLOROQUINE [Concomitant]
     Active Substance: HYDROXYCHLOROQUINE
  139. HYDROXYCHLOROQUINE [Concomitant]
     Active Substance: HYDROXYCHLOROQUINE
     Route: 048
  140. IBUPROFEN [Concomitant]
     Active Substance: IBUPROFEN
  141. LANSOPRAZOLE [Concomitant]
     Active Substance: LANSOPRAZOLE
     Dosage: DELAYED RELEASE
  142. LEFLUNOMIDE [Concomitant]
     Active Substance: LEFLUNOMIDE
     Indication: Rheumatoid arthritis
     Route: 058
  143. LEFLUNOMIDE [Concomitant]
     Active Substance: LEFLUNOMIDE
     Route: 048
  144. LEFLUNOMIDE [Concomitant]
     Active Substance: LEFLUNOMIDE
     Route: 048
  145. LEFLUNOMIDE [Concomitant]
     Active Substance: LEFLUNOMIDE
     Route: 048
  146. LEFLUNOMIDE [Concomitant]
     Active Substance: LEFLUNOMIDE
     Route: 048
  147. LEFLUNOMIDE [Concomitant]
     Active Substance: LEFLUNOMIDE
     Route: 048
  148. METHOTREXATE [Concomitant]
     Active Substance: METHOTREXATE
     Indication: Rheumatoid arthritis
     Route: 048
  149. METHOTREXATE [Concomitant]
     Active Substance: METHOTREXATE
     Route: 048
  150. METHOTREXATE [Concomitant]
     Active Substance: METHOTREXATE
     Route: 048
  151. METHOTREXATE [Concomitant]
     Active Substance: METHOTREXATE
     Route: 013
  152. METHOTREXATE [Concomitant]
     Active Substance: METHOTREXATE
     Route: 048
  153. METHOTREXATE [Concomitant]
     Active Substance: METHOTREXATE
     Route: 013
  154. METHOTREXATE [Concomitant]
     Active Substance: METHOTREXATE
     Route: 048
  155. METHOTREXATE [Concomitant]
     Active Substance: METHOTREXATE
     Route: 016
  156. METHOTREXATE [Concomitant]
     Active Substance: METHOTREXATE
     Route: 058
  157. METHOTREXATE [Concomitant]
     Active Substance: METHOTREXATE
     Route: 048
  158. METHOTREXATE [Concomitant]
     Active Substance: METHOTREXATE
     Route: 048
  159. METHOTREXATE [Concomitant]
     Active Substance: METHOTREXATE
     Route: 048
  160. METHOTREXATE [Concomitant]
     Active Substance: METHOTREXATE
     Route: 048
  161. METHOTREXATE [Concomitant]
     Active Substance: METHOTREXATE
     Route: 048
  162. METHOTREXATE [Concomitant]
     Active Substance: METHOTREXATE
  163. METHOTREXATE [Concomitant]
     Active Substance: METHOTREXATE
     Route: 048
  164. METHOTREXATE [Concomitant]
     Active Substance: METHOTREXATE
     Route: 048
  165. METHOTREXATE [Concomitant]
     Active Substance: METHOTREXATE
     Route: 048
  166. METHOTREXATE [Concomitant]
     Active Substance: METHOTREXATE
     Route: 048
  167. METHOTREXATE [Concomitant]
     Active Substance: METHOTREXATE
     Route: 048
  168. METHOTREXATE [Concomitant]
     Active Substance: METHOTREXATE
     Route: 048
  169. OXYCODONE [Concomitant]
     Active Substance: OXYCODONE
     Route: 042
  170. OXYCODONE HYDROCHLORIDE [Concomitant]
     Active Substance: OXYCODONE HYDROCHLORIDE
  171. OXYCODONE TEREPHTHALATE [Concomitant]
     Active Substance: OXYCODONE TEREPHTHALATE
  172. PANTOPRAZOLE [Concomitant]
     Active Substance: PANTOPRAZOLE
  173. PHTHALYLSULFATHIAZOLE [Concomitant]
     Active Substance: PHTHALYLSULFATHIAZOLE
     Route: 048
  174. PHTHALYLSULFATHIAZOLE [Concomitant]
     Active Substance: PHTHALYLSULFATHIAZOLE
  175. PREDNISONE [Concomitant]
     Active Substance: PREDNISONE
     Indication: Systemic lupus erythematosus
     Route: 016
  176. PREDNISONE [Concomitant]
     Active Substance: PREDNISONE
     Indication: Synovitis
     Route: 042
  177. PREDNISONE [Concomitant]
     Active Substance: PREDNISONE
     Indication: Rheumatoid arthritis
     Route: 058
  178. PREDNISONE [Concomitant]
     Active Substance: PREDNISONE
     Indication: Psoriatic arthropathy
     Route: 048
  179. PREDNISONE [Concomitant]
     Active Substance: PREDNISONE
     Indication: Arthritis
     Route: 016
  180. PREDNISONE [Concomitant]
     Active Substance: PREDNISONE
  181. PREDNISONE [Concomitant]
     Active Substance: PREDNISONE
  182. PREDNISONE [Concomitant]
     Active Substance: PREDNISONE
     Route: 048
  183. PREDNISONE [Concomitant]
     Active Substance: PREDNISONE
     Route: 048
  184. PREDNISONE [Concomitant]
     Active Substance: PREDNISONE
     Route: 048
  185. PREDNISONE [Concomitant]
     Active Substance: PREDNISONE
     Route: 048
  186. PREDNISONE [Concomitant]
     Active Substance: PREDNISONE
     Route: 048
  187. PREDNISONE [Concomitant]
     Active Substance: PREDNISONE
  188. PREDNISONE [Concomitant]
     Active Substance: PREDNISONE
     Route: 042
  189. PREDNISONE [Concomitant]
     Active Substance: PREDNISONE
     Route: 048
  190. PREDNISONE [Concomitant]
     Active Substance: PREDNISONE
     Route: 048
  191. PREDNISONE [Concomitant]
     Active Substance: PREDNISONE
     Route: 048
  192. PSEUDOEPHEDRINE HYDROCHLORIDE [Concomitant]
     Active Substance: PSEUDOEPHEDRINE HYDROCHLORIDE
     Indication: Rheumatoid arthritis
  193. PSEUDOEPHEDRINE HYDROCHLORIDE [Concomitant]
     Active Substance: PSEUDOEPHEDRINE HYDROCHLORIDE
  194. CETIRIZINE HYDROCHLORIDE\PSEUDOEPHEDRINE HYDROCHLORIDE [Concomitant]
     Active Substance: CETIRIZINE HYDROCHLORIDE\PSEUDOEPHEDRINE HYDROCHLORIDE
     Indication: Rheumatoid arthritis
  195. CETIRIZINE HYDROCHLORIDE\PSEUDOEPHEDRINE HYDROCHLORIDE [Concomitant]
     Active Substance: CETIRIZINE HYDROCHLORIDE\PSEUDOEPHEDRINE HYDROCHLORIDE
  196. CETIRIZINE HYDROCHLORIDE\PSEUDOEPHEDRINE HYDROCHLORIDE [Concomitant]
     Active Substance: CETIRIZINE HYDROCHLORIDE\PSEUDOEPHEDRINE HYDROCHLORIDE
     Dosage: (EXTENDED-RELEASE)
     Route: 048
  197. REMICADE [Concomitant]
     Active Substance: INFLIXIMAB
     Indication: Rheumatoid arthritis
     Route: 042
  198. REMICADE [Concomitant]
     Active Substance: INFLIXIMAB
     Route: 042
  199. REMICADE [Concomitant]
     Active Substance: INFLIXIMAB
     Dosage: POWDER FOR SOLUTION INTRAVENOUS
     Route: 042
  200. REMICADE [Concomitant]
     Active Substance: INFLIXIMAB
     Route: 042
  201. RITUXIMAB [Concomitant]
     Active Substance: RITUXIMAB
     Indication: Rheumatoid arthritis
     Route: 042
  202. RITUXIMAB [Concomitant]
     Active Substance: RITUXIMAB
     Route: 058
  203. RITUXIMAB [Concomitant]
     Active Substance: RITUXIMAB
     Route: 041
  204. RITUXIMAB [Concomitant]
     Active Substance: RITUXIMAB
     Route: 016
  205. RITUXIMAB [Concomitant]
     Active Substance: RITUXIMAB
     Route: 042
  206. RITUXIMAB [Concomitant]
     Active Substance: RITUXIMAB
     Route: 042
  207. SULFASALAZINE [Concomitant]
     Active Substance: SULFASALAZINE
  208. FISH OIL [Concomitant]
     Active Substance: FISH OIL
  209. SIMPONI [Concomitant]
     Active Substance: GOLIMUMAB
     Indication: Rheumatoid arthritis
     Route: 058
  210. SIMPONI [Concomitant]
     Active Substance: GOLIMUMAB
     Route: 058
  211. SIMPONI [Concomitant]
     Active Substance: GOLIMUMAB
     Route: 048
  212. SIMPONI [Concomitant]
     Active Substance: GOLIMUMAB
     Route: 058
  213. SIMPONI [Concomitant]
     Active Substance: GOLIMUMAB
     Route: 058
  214. SIMPONI [Concomitant]
     Active Substance: GOLIMUMAB
     Route: 042
  215. SIMPONI [Concomitant]
     Active Substance: GOLIMUMAB
     Route: 058
  216. STELARA [Concomitant]
     Active Substance: USTEKINUMAB
     Indication: Rheumatoid arthritis
     Route: 042
  217. STELARA [Concomitant]
     Active Substance: USTEKINUMAB
     Route: 058
  218. STELARA [Concomitant]
     Active Substance: USTEKINUMAB
     Route: 058
  219. STELARA [Concomitant]
     Active Substance: USTEKINUMAB
     Route: 058
  220. STELARA [Concomitant]
     Active Substance: USTEKINUMAB
  221. SULFAMETHOXAZOLE [Concomitant]
     Active Substance: SULFAMETHOXAZOLE
  222. SULFASALAZINE [Concomitant]
     Active Substance: SULFASALAZINE
     Indication: Rheumatoid arthritis
     Route: 048
  223. SULFASALAZINE [Concomitant]
     Active Substance: SULFASALAZINE
  224. SULFASALAZINE [Concomitant]
     Active Substance: SULFASALAZINE
  225. SULFASALAZINE [Concomitant]
     Active Substance: SULFASALAZINE
     Route: 048
  226. SULFASALAZINE [Concomitant]
     Active Substance: SULFASALAZINE
     Route: 048
  227. SULFASALAZINE [Concomitant]
     Active Substance: SULFASALAZINE
  228. SULFASALAZINE [Concomitant]
     Active Substance: SULFASALAZINE
     Route: 048
  229. SULFASALAZINE [Concomitant]
     Active Substance: SULFASALAZINE
  230. SULFASALAZINE [Concomitant]
     Active Substance: SULFASALAZINE
  231. SULFASALAZINE [Concomitant]
     Active Substance: SULFASALAZINE
     Route: 048
  232. SULFASALAZINE [Concomitant]
     Active Substance: SULFASALAZINE
     Route: 048
  233. SULFASALAZINE [Concomitant]
     Active Substance: SULFASALAZINE
     Route: 048
  234. SULFASALAZINE [Concomitant]
     Active Substance: SULFASALAZINE
     Route: 048
  235. SULFASALAZINE [Concomitant]
     Active Substance: SULFASALAZINE
  236. SULFASALAZINE [Concomitant]
     Active Substance: SULFASALAZINE
  237. SULFASALAZINE [Concomitant]
     Active Substance: SULFASALAZINE
     Route: 048
  238. SULFASALAZINE [Concomitant]
     Active Substance: SULFASALAZINE
     Route: 048
  239. SULFATRIM [Concomitant]
     Active Substance: SULFAMETHOXAZOLE\TRIMETHOPRIM
  240. TYLENOL [Concomitant]
     Active Substance: ACETAMINOPHEN
  241. VITAMIN C [Concomitant]
     Active Substance: ASCORBIC ACID
  242. XELJANZ [Concomitant]
     Active Substance: TOFACITINIB CITRATE
     Indication: Rheumatoid arthritis
  243. XELJANZ [Concomitant]
     Active Substance: TOFACITINIB CITRATE
     Indication: Psoriatic arthropathy
  244. XELJANZ [Concomitant]
     Active Substance: TOFACITINIB CITRATE
  245. XELJANZ [Concomitant]
     Active Substance: TOFACITINIB CITRATE
  246. XELJANZ [Concomitant]
     Active Substance: TOFACITINIB CITRATE
  247. XELJANZ [Concomitant]
     Active Substance: TOFACITINIB CITRATE
     Route: 048
  248. XELJANZ [Concomitant]
     Active Substance: TOFACITINIB CITRATE
  249. XELJANZ [Concomitant]
     Active Substance: TOFACITINIB CITRATE
     Route: 016
  250. XELJANZ [Concomitant]
     Active Substance: TOFACITINIB CITRATE
     Route: 042
  251. XELJANZ [Concomitant]
     Active Substance: TOFACITINIB CITRATE
     Route: 048
  252. XELJANZ [Concomitant]
     Active Substance: TOFACITINIB CITRATE

REACTIONS (16)
  - Asthma [Unknown]
  - Autoimmune disorder [Unknown]
  - Chest pain [Unknown]
  - Condition aggravated [Unknown]
  - Contusion [Unknown]
  - Deep vein thrombosis postoperative [Unknown]
  - Drug hypersensitivity [Unknown]
  - Gait inability [Unknown]
  - Lower limb fracture [Unknown]
  - Off label use [Unknown]
  - Road traffic accident [Unknown]
  - Therapy non-responder [Unknown]
  - Treatment failure [Unknown]
  - Urticaria [Unknown]
  - Adverse event [Unknown]
  - Hospitalisation [Unknown]
